FAERS Safety Report 14002277 (Version 2)
Quarter: 2018Q1

REPORT INFORMATION
  Report Type: Spontaneous
  Country: US (occurrence: US)
  Receive Date: 20170922
  Receipt Date: 20180117
  Transmission Date: 20180508
  Serious: Yes (Hospitalization)
  Sender: FDA-Public Use
  Company Number: US-JNJFOC-20170919085

PATIENT
  Age: 62 Year
  Sex: Male
  Weight: 90.27 kg

DRUGS (3)
  1. XARELTO [Suspect]
     Active Substance: RIVAROXABAN
     Indication: PULMONARY EMBOLISM
     Route: 048
     Dates: start: 20150731, end: 20150918
  2. XARELTO [Suspect]
     Active Substance: RIVAROXABAN
     Indication: CARDIAC OPERATION
     Route: 048
     Dates: start: 20150731, end: 20150918
  3. ASPIRIN. [Suspect]
     Active Substance: ASPIRIN
     Indication: PRODUCT USED FOR UNKNOWN INDICATION
     Route: 048
     Dates: start: 20150701, end: 20150923

REACTIONS (1)
  - Peritoneal haemorrhage [Recovering/Resolving]

NARRATIVE: CASE EVENT DATE: 20150918
